FAERS Safety Report 8509917-X (Version None)
Quarter: 2012Q3

REPORT INFORMATION
  Report Type: 
  Country: None (occurrence: None)
  Receive Date: 20120713
  Receipt Date: 20120705
  Transmission Date: 20120928
  Serious: Yes (Hospitalization)
  Sender: FDA-Public Use
  Company Number: US-MILLENNIUM PHARMACEUTICALS, INC.-2011-04293

PATIENT
  Sex: Male
  Weight: 93.424 kg

DRUGS (1)
  1. VELCADE [Suspect]
     Indication: MULTIPLE MYELOMA
     Dosage: 2.95 MG, CYCLIC
     Route: 042
     Dates: start: 20110207, end: 20110303

REACTIONS (1)
  - PSEUDOMEMBRANOUS COLITIS [None]
